FAERS Safety Report 8808890 (Version 2)
Quarter: 2013Q1

REPORT INFORMATION
  Report Type: Spontaneous
  Country: US (occurrence: US)
  Receive Date: 20120926
  Receipt Date: 20130107
  Transmission Date: 20140127
  Serious: Yes (Other)
  Sender: FDA-Public Use
  Company Number: US-BRISTOL-MYERS SQUIBB COMPANY-16674426

PATIENT
  Age: 61 Year
  Sex: Female

DRUGS (13)
  1. ORENCIA [Suspect]
     Indication: RHEUMATOID ARTHRITIS
     Dosage: PREVIOUSLY TOOK ORENCIA IV,NO OF INJ:2,LAST INJ ON 16SEP12,16DEC12
     Route: 058
  2. METHOTREXATE [Concomitant]
  3. BYSTOLIC [Concomitant]
  4. NORVASC [Concomitant]
  5. LISINOPRIL [Concomitant]
  6. FOLIC ACID [Concomitant]
  7. VITAMIN D [Concomitant]
  8. IRON [Concomitant]
  9. CRESTOR [Concomitant]
  10. CYMBALTA [Concomitant]
  11. AMITRIPTYLINE [Concomitant]
  12. LORATAB [Concomitant]
  13. PREDNISONE [Concomitant]

REACTIONS (4)
  - Myocardial infarction [Unknown]
  - Influenza like illness [Unknown]
  - Rheumatoid arthritis [Unknown]
  - Respiratory tract infection [Unknown]
